FAERS Safety Report 19372006 (Version 2)
Quarter: 2021Q2

REPORT INFORMATION
  Report Type: Spontaneous
  Country: US (occurrence: US)
  Receive Date: 20210603
  Receipt Date: 20210611
  Transmission Date: 20210717
  Serious: Yes (Other)
  Sender: FDA-Public Use
  Company Number: US-ORGANON-O2106USA000285

PATIENT
  Sex: Male

DRUGS (1)
  1. PROPECIA [Suspect]
     Active Substance: FINASTERIDE
     Indication: PRODUCT USED FOR UNKNOWN INDICATION
     Dosage: 15 MG, 3 TABLETS
     Route: 048
     Dates: start: 2013, end: 2013

REACTIONS (5)
  - Heart rate decreased [Unknown]
  - Depressed level of consciousness [Unknown]
  - Post 5-alpha-reductase inhibitor syndrome [Unknown]
  - Intentional overdose [Unknown]
  - Memory impairment [Unknown]

NARRATIVE: CASE EVENT DATE: 2013
